FAERS Safety Report 9759998 (Version 1)
Quarter: 2013Q4

REPORT INFORMATION
  Report Type: Spontaneous
  Country: US (occurrence: US)
  Receive Date: 20131216
  Receipt Date: 20131216
  Transmission Date: 20140711
  Serious: No
  Sender: FDA-Public Use
  Company Number: US-BIOGENIDEC-2013BI045671

PATIENT
  Age: 54 Year
  Sex: Female

DRUGS (19)
  1. TECFIDERA [Suspect]
     Indication: MULTIPLE SCLEROSIS
     Route: 048
     Dates: start: 20130503, end: 20130509
  2. TECFIDERA [Suspect]
     Indication: MULTIPLE SCLEROSIS
     Route: 048
     Dates: start: 20130510
  3. TECFIDERA [Suspect]
     Indication: MULTIPLE SCLEROSIS
  4. AMLODIPINE [Concomitant]
  5. OMEPRAZOLE [Concomitant]
  6. SUMATRIPTAN [Concomitant]
  7. TRAMADOL [Concomitant]
  8. AMITRTYLINE [Concomitant]
  9. CARBAMAZEPINE [Concomitant]
  10. METOCLOPRAMIDE [Concomitant]
  11. CYMBALTA [Concomitant]
  12. VAGIFEM [Concomitant]
  13. NAPROXEN [Concomitant]
  14. TOPIRAMATE [Concomitant]
  15. NITROFURANTION [Concomitant]
  16. HYDROCHLOROQUINE [Concomitant]
  17. TAMSULOSIN [Concomitant]
  18. NASONEX [Concomitant]
  19. MONTELUKAST [Concomitant]

REACTIONS (4)
  - Weight decreased [Unknown]
  - Nausea [Recovered/Resolved]
  - Abdominal pain upper [Not Recovered/Not Resolved]
  - Flushing [Recovered/Resolved]
